FAERS Safety Report 18285593 (Version 1)
Quarter: 2020Q3

REPORT INFORMATION
  Report Type: Spontaneous
  Country: FR (occurrence: FR)
  Receive Date: 20200918
  Receipt Date: 20200918
  Transmission Date: 20201103
  Serious: Yes (Hospitalization)
  Sender: FDA-Public Use
  Company Number: NVSC2020FR251845

PATIENT
  Age: 29 Year
  Sex: Male
  Weight: 55 kg

DRUGS (2)
  1. TASIGNA [Suspect]
     Active Substance: NILOTINIB
     Indication: CHRONIC MYELOID LEUKAEMIA
     Dosage: 4 DF, QD
     Route: 048
     Dates: start: 20200221, end: 20200310
  2. ICLUSIG [Suspect]
     Active Substance: PONATINIB
     Indication: CHRONIC MYELOID LEUKAEMIA
     Dosage: 1 DF, QD
     Route: 048
     Dates: start: 20190713, end: 20200221

REACTIONS (2)
  - Hepatic fibrosis [Recovering/Resolving]
  - Hepatitis [Recovered/Resolved]

NARRATIVE: CASE EVENT DATE: 20200101
